FAERS Safety Report 21341683 (Version 1)
Quarter: 2022Q3

REPORT INFORMATION
  Report Type: Spontaneous
  Country: US (occurrence: None)
  Receive Date: 20220915
  Receipt Date: 20220915
  Transmission Date: 20221027
  Serious: No
  Sender: FDA-Public Use
  Company Number: None

PATIENT
  Age: 64 Year
  Sex: Male
  Weight: 80.55 kg

DRUGS (4)
  1. TRELEGY ELLIPTA [Suspect]
     Active Substance: FLUTICASONE FUROATE\UMECLIDINIUM BROMIDE\VILANTEROL TRIFENATATE
     Indication: Chronic obstructive pulmonary disease
     Dosage: FREQUENCY : DAILY;?
     Route: 055
  2. MULTI [Concomitant]
  3. ZINC [Concomitant]
     Active Substance: ZINC
  4. VITAMIN D NOS [Concomitant]
     Active Substance: VITAMIN D NOS

REACTIONS (6)
  - Dyspnoea [None]
  - Influenza like illness [None]
  - Chronic obstructive pulmonary disease [None]
  - Dry mouth [None]
  - Vision blurred [None]
  - Fatigue [None]

NARRATIVE: CASE EVENT DATE: 20220909
